FAERS Safety Report 6540601-8 (Version None)
Quarter: 2010Q1

REPORT INFORMATION
  Report Type: 
  Country: None (occurrence: None)
  Receive Date: 20100118
  Receipt Date: 20100108
  Transmission Date: 20100710
  Serious: Yes (Hospitalization)
  Sender: FDA-Public Use
  Company Number: IN-ELI_LILLY_AND_COMPANY-IN200912005762

PATIENT
  Sex: Male
  Weight: 70 kg

DRUGS (15)
  1. PEMETREXED [Suspect]
     Indication: NON-SMALL CELL LUNG CANCER
     Dosage: 500 MG/M2, DAY 1 EVERY 21 DAYS
     Route: 042
     Dates: start: 20090915, end: 20091118
  2. CISPLATIN [Suspect]
     Indication: NON-SMALL CELL LUNG CANCER
     Dosage: 75 MG/M2, DAY 1 EVERY 21 DAYS
     Route: 042
     Dates: start: 20090915, end: 20091118
  3. PLACEBO [Suspect]
     Indication: NON-SMALL CELL LUNG CANCER
     Dosage: UNK, DAY 1 EVERY 21 DAYS
     Route: 042
     Dates: start: 20091218
  4. MONOCEF [Concomitant]
     Indication: INFECTION
     Dosage: 1 G, 2/D
     Route: 042
     Dates: start: 20091224, end: 20091226
  5. AMIKACIN [Concomitant]
     Indication: INFECTION
     Dosage: 500 MG, 2/D
     Route: 042
     Dates: start: 20091224, end: 20091226
  6. AMIKACIN [Concomitant]
     Dosage: 500 MG, UNKNOWN
     Route: 042
     Dates: start: 20091201, end: 20100106
  7. PANTOPRAZOLE [Concomitant]
     Indication: ANTACID THERAPY
     Dosage: 40 MG, UNK
     Route: 042
     Dates: start: 20091224
  8. ONDASETRON [Concomitant]
     Indication: ANTIEMETIC SUPPORTIVE CARE
     Dosage: 4 MG, UNK
     Route: 042
     Dates: start: 20091224, end: 20100105
  9. CLOTRIMAZOLE [Concomitant]
     Indication: CANDIDIASIS
     Dosage: UNK, UNK
     Dates: start: 20091224, end: 20091226
  10. ANTIMYCOBACTERIALS [Concomitant]
     Dosage: UNK, UNK
     Dates: start: 20091224, end: 20091226
  11. FOLIC ACID [Concomitant]
     Indication: PROPHYLAXIS
     Dates: start: 20090911
  12. VITAMIN B-12 [Concomitant]
     Indication: PROPHYLAXIS
     Dates: start: 20091028, end: 20091028
  13. DEXAMETHASONE [Concomitant]
     Indication: PROPHYLAXIS
     Dates: start: 20091217, end: 20091219
  14. GLIMEPIRIDE [Concomitant]
     Indication: DIABETES MELLITUS
  15. METFORMIN [Concomitant]
     Indication: DIABETES MELLITUS

REACTIONS (2)
  - HYPOGLYCAEMIA [None]
  - SEPSIS [None]
